FAERS Safety Report 25311512 (Version 3)
Quarter: 2025Q4

REPORT INFORMATION
  Report Type: Spontaneous
  Country: JP (occurrence: JP)
  Receive Date: 20250514
  Receipt Date: 20251017
  Transmission Date: 20260117
  Serious: Yes (Other)
  Sender: BAXTER
  Company Number: JP-BAXTER-2025BAX015375

PATIENT
  Age: 50 Year
  Sex: Female

DRUGS (9)
  1. CYCLOPHOSPHAMIDE [Suspect]
     Active Substance: CYCLOPHOSPHAMIDE
     Dosage: 770 MG, QD
     Route: 041
     Dates: start: 20171024, end: 20171024
  2. CYCLOPHOSPHAMIDE [Suspect]
     Active Substance: CYCLOPHOSPHAMIDE
     Dosage: 770 MG, QD
     Route: 041
     Dates: start: 20171107, end: 20171107
  3. CYCLOPHOSPHAMIDE [Suspect]
     Active Substance: CYCLOPHOSPHAMIDE
     Dosage: 770 MG, QD
     Route: 041
     Dates: start: 20171121, end: 20171121
  4. CYCLOPHOSPHAMIDE [Suspect]
     Active Substance: CYCLOPHOSPHAMIDE
     Dosage: 800 MG, QD
     Route: 041
     Dates: start: 20240902, end: 20240902
  5. CYCLOPHOSPHAMIDE [Suspect]
     Active Substance: CYCLOPHOSPHAMIDE
     Dosage: 800 MG, QD
     Route: 041
     Dates: start: 20240917, end: 20240917
  6. CYCLOPHOSPHAMIDE [Suspect]
     Active Substance: CYCLOPHOSPHAMIDE
     Dosage: 800 MG, QD
     Route: 041
     Dates: start: 20240930, end: 20240930
  7. MESNA [Suspect]
     Active Substance: MESNA
     Dosage: 300 MG, ONCE IN 8 HOUR
     Route: 041
     Dates: start: 20171024, end: 20171024
  8. MESNA [Suspect]
     Active Substance: MESNA
     Dosage: 330 MG, QD
     Route: 041
     Dates: start: 20171107, end: 20171107
  9. MESNA [Suspect]
     Active Substance: MESNA
     Dosage: 300 MG, ONCE IN 8 HOUR
     Route: 041
     Dates: start: 20171121, end: 20171121

REACTIONS (10)
  - Retroperitoneal abscess [Recovered/Resolved]
  - Diverticulitis [Recovered/Resolved]
  - Diabetes mellitus [Recovering/Resolving]
  - Cytomegalovirus infection [Recovered/Resolved]
  - Dysarthria [Recovering/Resolving]
  - Lipids abnormal [Recovering/Resolving]
  - Dysphagia [Recovering/Resolving]
  - Osteoporosis [Not Recovered/Not Resolved]
  - Hepatic enzyme increased [Recovered/Resolved]
  - Constipation [Recovering/Resolving]

NARRATIVE: CASE EVENT DATE: 20171016
